FAERS Safety Report 5158758-2 (Version None)
Quarter: 2006Q4

REPORT INFORMATION
  Report Type: 
  Country: None (occurrence: None)
  Receive Date: 20061117
  Receipt Date: 20061106
  Transmission Date: 20070319
  Serious: Yes (Other)
  Sender: FDA-Public Use
  Company Number: 2006137144

PATIENT
  Sex: Female

DRUGS (7)
  1. CELEBREX [Suspect]
     Indication: OSTEOPOROSIS
     Dosage: 600 MG (200 MG, 3 IN 1 D), ORAL
     Route: 048
     Dates: start: 20061001, end: 20061001
  2. HIGROTON (CHLORTALIDONE) [Concomitant]
  3. LOSARTAN POSTASSIUM [Concomitant]
  4. DIABINESE [Concomitant]
  5. ASPIRIN [Concomitant]
  6. SIMVASTATIN [Concomitant]
  7. BUDESONIDE [Concomitant]

REACTIONS (1)
  - SKIN EXFOLIATION [None]
